FAERS Safety Report 16706978 (Version 3)
Quarter: 2020Q4

REPORT INFORMATION
  Report Type: Report from Study
  Country: JP (occurrence: JP)
  Receive Date: 20190815
  Receipt Date: 20201228
  Transmission Date: 20210113
  Serious: Yes (Death, Life-Threatening, Hospitalization, Other)
  Sender: FDA-Public Use
  Company Number: JP-GILEAD-2019-0416020

PATIENT
  Age: 61 Year
  Sex: Female
  Weight: 46 kg

DRUGS (14)
  1. AMINOLEBAN [Concomitant]
     Active Substance: AMINO ACIDS, SOURCE UNSPECIFIED
     Indication: HEPATITIS C
     Dosage: HALF TABLET, 1 PACKET, QD
     Route: 048
     Dates: end: 20190627
  2. AMINOLEBAN [Concomitant]
     Active Substance: AMINO ACIDS, SOURCE UNSPECIFIED
     Indication: HEPATIC CIRRHOSIS
  3. NEXIUM 1-2-3 [Concomitant]
     Active Substance: AMOXICILLIN\CLARITHROMYCIN\ESOMEPRAZOLE
  4. IRBESARTAN. [Concomitant]
     Active Substance: IRBESARTAN
  5. URSO 1A PHARMA [Concomitant]
  6. HEPAACT [Concomitant]
     Indication: HEPATIC CIRRHOSIS
  7. FEBURIC [Concomitant]
     Active Substance: FEBUXOSTAT
  8. SOFOSBUVIR W/VELPATASVIR [Suspect]
     Active Substance: SOFOSBUVIR\VELPATASVIR
     Indication: HEPATIC CIRRHOSIS
     Dosage: 1 DOSAGE FORM, QD
     Route: 048
     Dates: start: 201906, end: 20190627
  9. HEPAACT [Concomitant]
     Indication: HEPATITIS C
     Dosage: 1 PACKET, TID
     Route: 048
     Dates: end: 20190627
  10. SOFOSBUVIR W/VELPATASVIR [Suspect]
     Active Substance: SOFOSBUVIR\VELPATASVIR
     Indication: HEPATITIS C
  11. PROGRAF [Concomitant]
     Active Substance: TACROLIMUS
     Indication: LIVER TRANSPLANT
     Dosage: 0.2 MG, BID
     Route: 048
  12. FUROSEMIDE. [Concomitant]
     Active Substance: FUROSEMIDE
  13. LAGNOS [Concomitant]
     Indication: HEPATITIS C
     Dosage: 1 PACKET, TID
     Route: 048
     Dates: end: 20190627
  14. LAGNOS [Concomitant]
     Indication: HEPATIC CIRRHOSIS

REACTIONS (6)
  - Cerebral haemorrhage [Not Recovered/Not Resolved]
  - Hepatic failure [Unknown]
  - Aortic valve incompetence [Unknown]
  - Death [Fatal]
  - Cardiac valve vegetation [Unknown]
  - Sepsis [Unknown]

NARRATIVE: CASE EVENT DATE: 20190627
